FAERS Safety Report 5979220-0 (Version None)
Quarter: 2008Q4

REPORT INFORMATION
  Report Type: 
  Country: None (occurrence: None)
  Receive Date: 20081204
  Receipt Date: 20080520
  Transmission Date: 20090506
  Serious: No
  Sender: FDA-Public Use
  Company Number: US-ABBOTT-08P-163-0455195-00

PATIENT
  Age: 53 Year
  Sex: Female

DRUGS (3)
  1. TRICOR [Suspect]
     Indication: BLOOD CHOLESTEROL INCREASED
     Dates: start: 20071018
  2. FLU SHOT [Concomitant]
     Indication: INFLUENZA
     Dates: start: 20071018
  3. PNEUMONIA SHOT [Concomitant]
     Indication: PNEUMONIA
     Dates: start: 20071018

REACTIONS (8)
  - ABDOMINAL PAIN UPPER [None]
  - ARTHRALGIA [None]
  - BACK PAIN [None]
  - HEADACHE [None]
  - MUSCLE SPASMS [None]
  - MUSCULOSKELETAL PAIN [None]
  - NECK PAIN [None]
  - PAIN IN EXTREMITY [None]
